FAERS Safety Report 8273829-X (Version None)
Quarter: 2012Q2

REPORT INFORMATION
  Report Type: 
  Country: None (occurrence: None)
  Receive Date: 20120411
  Receipt Date: 20110301
  Transmission Date: 20120825
  Serious: Yes (Other)
  Sender: FDA-Public Use
  Company Number: AU-FRI-1000029684

PATIENT
  Sex: Male

DRUGS (4)
  1. OLMESARTAN MEDOXOMIL AND HYDROCHLOROTHIZIDE [Concomitant]
     Dosage: 40/12.5 MG
  2. CLOPIDOGREL [Concomitant]
  3. FELODIPINE [Concomitant]
     Dosage: 5 MG
  4. ESCITALOPRAM [Suspect]
     Dosage: 20 MG
     Route: 048

REACTIONS (5)
  - TREMOR [None]
  - ERECTILE DYSFUNCTION [None]
  - FATIGUE [None]
  - HYPERHIDROSIS [None]
  - TRANSIENT ISCHAEMIC ATTACK [None]
